FAERS Safety Report 13704391 (Version 1)
Quarter: 2017Q2

REPORT INFORMATION
  Report Type: Other
  Country: IT (occurrence: IT)
  Receive Date: 20170630
  Receipt Date: 20170630
  Transmission Date: 20170830
  Serious: Yes (Hospitalization, Other)
  Sender: FDA-Public Use
  Company Number: IT-APOTEX-2017AP013584

PATIENT
  Age: 44 Year
  Sex: Female
  Weight: 49 kg

DRUGS (11)
  1. CLARITROMICINA DOC GENERICI [Suspect]
     Active Substance: CLARITHROMYCIN
     Indication: ANTIBIOTIC PROPHYLAXIS
     Dosage: 1000 MG, EVERY OTHER DAY
     Route: 048
     Dates: start: 20170201, end: 20170530
  2. RIFADIN [Suspect]
     Active Substance: RIFAMPIN
     Indication: ANTIBIOTIC PROPHYLAXIS
     Dosage: 600 MG, EVERY OTHER DAY
     Route: 048
     Dates: start: 20170201, end: 20170530
  3. ENDOXAN                            /00021102/ [Concomitant]
     Active Substance: CYCLOPHOSPHAMIDE
     Indication: NON-HODGKIN^S LYMPHOMA
     Dosage: 720 MG, UNK
     Route: 042
     Dates: start: 20170303, end: 20170611
  4. CLARITROMICINA DOC GENERICI [Suspect]
     Active Substance: CLARITHROMYCIN
     Dosage: UNK
     Route: 065
  5. ETAPIAM [Suspect]
     Active Substance: ETHAMBUTOL HYDROCHLORIDE
     Dosage: UNK
     Route: 065
  6. ETOPOSIDE-TEVA [Concomitant]
     Active Substance: ETOPOSIDE
     Indication: NON-HODGKIN^S LYMPHOMA
     Dosage: 70 MG, UNK, 20 MG/ ML,
     Route: 042
     Dates: start: 20170228, end: 20170607
  7. VINCRISTINA TEVA [Concomitant]
     Active Substance: VINCRISTINE
     Indication: NON-HODGKIN^S LYMPHOMA
     Dosage: 40 MG, UNK, 1MG/ML,
     Route: 042
     Dates: start: 20170228, end: 20170607
  8. RIFADIN [Suspect]
     Active Substance: RIFAMPIN
     Dosage: UNK
     Route: 065
  9. ETAPIAM [Suspect]
     Active Substance: ETHAMBUTOL HYDROCHLORIDE
     Indication: ANTIBIOTIC PROPHYLAXIS
     Dosage: 1200 MG, EVERY OTHER DAY
     Route: 048
     Dates: start: 20170201, end: 20170530
  10. MABTHERA [Concomitant]
     Active Substance: RITUXIMAB
     Indication: NON-HODGKIN^S LYMPHOMA
     Dosage: 500 MG, UNK, 50 ML
     Route: 042
     Dates: start: 20170327, end: 20170606
  11. DOXORUBICINA ACCORD [Concomitant]
     Indication: NON-HODGKIN^S LYMPHOMA
     Dosage: 15 MG, UNK, 2MG/ML,
     Route: 042
     Dates: start: 20170228, end: 20170607

REACTIONS (4)
  - Leukopenia [Unknown]
  - Drug interaction [Unknown]
  - Hepatotoxicity [Unknown]
  - Neutropenia [Unknown]

NARRATIVE: CASE EVENT DATE: 20170508
